FAERS Safety Report 16275242 (Version 2)
Quarter: 2019Q2

REPORT INFORMATION
  Report Type: Report from Study
  Country: US (occurrence: US)
  Receive Date: 20190504
  Receipt Date: 20190618
  Transmission Date: 20190711
  Serious: Yes (Hospitalization)
  Sender: FDA-Public Use
  Company Number: PHEH2019US018333

PATIENT
  Age: 78 Year
  Sex: Female

DRUGS (1)
  1. COSENTYX [Suspect]
     Active Substance: SECUKINUMAB
     Indication: PSORIASIS
     Dosage: 300 MG, Q4W (INJECT 2 PENS (300 MG) SUBCUTANEOUSLY ONCE EVERY FOUR WEEKS)
     Route: 058

REACTIONS (4)
  - Renal disorder [Unknown]
  - Urinary tract infection [Unknown]
  - Psoriasis [Unknown]
  - Bladder disorder [Unknown]
